FAERS Safety Report 6344005-2 (Version None)
Quarter: 2009Q3

REPORT INFORMATION
  Report Type: 
  Country: None (occurrence: None)
  Receive Date: 20090908
  Receipt Date: 20090826
  Transmission Date: 20100115
  Serious: Yes (Hospitalization, Other)
  Sender: FDA-Public Use
  Company Number: JP-PFIZER INC-2009264486

PATIENT
  Age: 65 Year

DRUGS (22)
  1. CAMPTOSAR [Suspect]
     Indication: SMALL CELL LUNG CANCER STAGE UNSPECIFIED
     Dosage: 58.8 MG/M2, TDD: 110 MG
     Route: 041
     Dates: start: 20090401, end: 20090401
  2. CAMPTOSAR [Suspect]
     Dosage: 61.5 MG/M2, TDD: 115 MG
     Route: 041
     Dates: start: 20090408, end: 20090408
  3. CAMPTOSAR [Suspect]
     Dosage: 48.1 MG/M2, TDD: 90 MG
     Route: 041
     Dates: start: 20090513, end: 20090624
  4. PARAPLATIN [Suspect]
     Indication: SMALL CELL LUNG CANCER STAGE UNSPECIFIED
     Dosage: 320 MG/M2, TDD: 600 MG
     Route: 041
     Dates: start: 20090401, end: 20090401
  5. PARAPLATIN [Suspect]
     Dosage: 267.4 MG/M2, TDD: 500 MG
     Route: 041
     Dates: start: 20090513, end: 20090617
  6. SEROTONE [Concomitant]
     Indication: PREMEDICATION
     Dosage: 10 MG
     Route: 041
     Dates: start: 20090401, end: 20090624
  7. DECADRON [Concomitant]
     Indication: PREMEDICATION
     Dosage: 8 MG
     Route: 041
     Dates: start: 20090401, end: 20090624
  8. ZANTAC [Concomitant]
     Indication: PREMEDICATION
     Dosage: 50 MG
     Route: 041
     Dates: start: 20090401, end: 20090624
  9. CODEINE PHOSPHATE [Concomitant]
     Indication: COUGH
     Dosage: 2 G, 3X/DAY
     Route: 048
     Dates: start: 20090401, end: 20090506
  10. NEUTROGIN [Concomitant]
     Indication: LEUKOPENIA
     Dosage: 1 DF
     Dates: start: 20090418, end: 20090421
  11. FLOMOX [Concomitant]
     Indication: PYREXIA
     Dosage: 100 MG, 3X/DAY
     Route: 048
     Dates: start: 20090506, end: 20090519
  12. FLOMOX [Concomitant]
     Indication: BRONCHITIS
  13. LOXONIN [Concomitant]
     Indication: PYREXIA
     Dosage: 60 MG, 3X/DAY
     Route: 048
     Dates: start: 20090506, end: 20090508
  14. RINDERON [Concomitant]
     Indication: INCREASED APPETITE
     Dosage: 1 DF, BID/SID
     Route: 048
     Dates: start: 20090508, end: 20090514
  15. RINDERON [Concomitant]
     Dosage: 1 DF, BID/SID
     Route: 048
     Dates: start: 20090610, end: 20090630
  16. PARIET [Concomitant]
     Indication: ABDOMINAL DISCOMFORT
     Dosage: 1 DF
     Route: 048
     Dates: start: 20090508, end: 20090805
  17. VESICARE [Concomitant]
     Indication: BENIGN PROSTATIC HYPERPLASIA
     Dosage: 5 MG
     Route: 048
     Dates: start: 20090513, end: 20090519
  18. RAMOSETRON HYDROCHLORIDE [Concomitant]
     Indication: INCREASED APPETITE
     Dosage: 0.1 MG
     Route: 048
     Dates: start: 20090513, end: 20090630
  19. RAMOSETRON HYDROCHLORIDE [Concomitant]
     Indication: NAUSEA
  20. LEVOFLOXACIN [Concomitant]
     Indication: BRONCHITIS
     Dosage: 200 MG, 2X/DAY
     Route: 048
     Dates: start: 20090620, end: 20090702
  21. TAMSULOSIN HYDROCHLORIDE [Concomitant]
     Indication: BENIGN PROSTATIC HYPERPLASIA
     Dosage: 0.2 MG, UNK
     Route: 048
     Dates: start: 20090620
  22. PRIMPERAN [Concomitant]
     Indication: NAUSEA
     Dosage: 5 MG, 3X/DAY
     Route: 048
     Dates: start: 20090624, end: 20090630

REACTIONS (2)
  - NEUTROPENIA [None]
  - PNEUMONITIS [None]
